FAERS Safety Report 11566714 (Version 1)
Quarter: 2015Q3

REPORT INFORMATION
  Report Type: Spontaneous
  Country: US (occurrence: US)
  Receive Date: 20150916
  Receipt Date: 20150916
  Transmission Date: 20151125
  Serious: No
  Sender: FDA-Public Use
  Company Number: US-ELI_LILLY_AND_COMPANY-US200906005271

PATIENT
  Age: 68 Year
  Sex: Female

DRUGS (3)
  1. LANOXIN [Concomitant]
     Active Substance: DIGOXIN
  2. FORTEO [Suspect]
     Active Substance: TERIPARATIDE
     Dosage: UNK, UNK
     Dates: start: 2007
  3. TAMBOCOR [Concomitant]
     Active Substance: FLECAINIDE ACETATE

REACTIONS (11)
  - Heart rate decreased [Recovered/Resolved]
  - Decreased appetite [Recovered/Resolved]
  - Presyncope [Recovered/Resolved]
  - Nausea [Recovered/Resolved]
  - Blood pressure decreased [Recovered/Resolved]
  - Pain [Not Recovered/Not Resolved]
  - Weight decreased [Recovered/Resolved]
  - Varicose vein [Not Recovered/Not Resolved]
  - Dizziness [Not Recovered/Not Resolved]
  - Exostosis [Not Recovered/Not Resolved]
  - Balance disorder [Recovered/Resolved]

NARRATIVE: CASE EVENT DATE: 2009
